FAERS Safety Report 6094929-9 (Version None)
Quarter: 2009Q1

REPORT INFORMATION
  Report Type: 
  Country: None (occurrence: None)
  Receive Date: 20090227
  Receipt Date: 20090224
  Transmission Date: 20090719
  Serious: Yes (Other)
  Sender: FDA-Public Use
  Company Number: US-BRISTOL-MYERS SQUIBB COMPANY-14521744

PATIENT
  Sex: Female

DRUGS (4)
  1. AVAPRO [Suspect]
  2. DETROL LA [Suspect]
     Indication: HYPERTONIC BLADDER
     Dosage: 1 DOSAGE FORM = MODIFIED-RELEASE CAPSULE, SOFT
  3. ATENOLOL [Concomitant]
  4. VERAPMIL [Concomitant]

REACTIONS (1)
  - HIP ARTHROPLASTY [None]
